APPROVED DRUG PRODUCT: BETAXON
Active Ingredient: LEVOBETAXOLOL HYDROCHLORIDE
Strength: EQ 0.5% BASE
Dosage Form/Route: SUSPENSION/DROPS;OPHTHALMIC
Application: N021114 | Product #001
Applicant: ALCON PHARMACEUTICALS LTD
Approved: Feb 23, 2000 | RLD: No | RS: No | Type: DISCN